FAERS Safety Report 9434800 (Version 1)
Quarter: 2013Q3

REPORT INFORMATION
  Report Type: Spontaneous
  Country: US (occurrence: None)
  Receive Date: 20130731
  Receipt Date: 20130731
  Transmission Date: 20140515
  Serious: Yes (Hospitalization)
  Sender: FDA-Public Use
  Company Number: None

PATIENT
  Age: 13 Year
  Sex: Male
  Weight: 64.41 kg

DRUGS (1)
  1. CEFAZOLIN [Suspect]
     Indication: STAPHYLOCOCCAL OSTEOMYELITIS
     Route: 042
     Dates: start: 20130705, end: 20130728

REACTIONS (13)
  - Body temperature fluctuation [None]
  - Inflammatory marker increased [None]
  - Muscle spasms [None]
  - Pain in extremity [None]
  - Agitation [None]
  - Burning sensation [None]
  - Pain [None]
  - Infusion related reaction [None]
  - Heart rate increased [None]
  - Blood pressure increased [None]
  - Screaming [None]
  - Cough [None]
  - Product quality issue [None]
